FAERS Safety Report 21086437 (Version 1)
Quarter: 2022Q3

REPORT INFORMATION
  Report Type: Report from Study
  Country: US (occurrence: US)
  Receive Date: 20220715
  Receipt Date: 20220715
  Transmission Date: 20221027
  Serious: No
  Sender: FDA-Public Use
  Company Number: US-BIOVITRUM-2022US08743

PATIENT
  Sex: Female

DRUGS (1)
  1. KINERET [Suspect]
     Active Substance: ANAKINRA
     Indication: Product used for unknown indication
     Dates: start: 20220626, end: 20220703

REACTIONS (7)
  - Pain [Unknown]
  - Discomfort [Recovered/Resolved]
  - Hypersensitivity [Unknown]
  - Injection site erythema [Unknown]
  - Injection site urticaria [Unknown]
  - Injection site pruritus [Unknown]
  - Pruritus [Recovered/Resolved]
